FAERS Safety Report 7226911-X (Version None)
Quarter: 2011Q1

REPORT INFORMATION
  Report Type: 
  Country: None (occurrence: None)
  Receive Date: 20110105
  Receipt Date: 20101220
  Transmission Date: 20110831
  Serious: Yes (Life-Threatening, Hospitalization, Other)
  Sender: FDA-Public Use
  Company Number: 1000017558

PATIENT
  Age: 80 Year
  Sex: Female
  Weight: 74.8 kg

DRUGS (10)
  1. CITALOPRAM HYDROBROMIDE [Suspect]
     Dosage: 10 MG (10 MG, 1 IN 1 D), ORAL
     Route: 048
     Dates: start: 20100413, end: 20100707
  2. MCP (METOCLOPRAMIDE) (DROPS (FOR ORAL USE)) (METOCLOPRAMIDE) [Concomitant]
  3. HALOPERIDOL (HALOPERIDOL) (DROPS (FOR ORAL USE)) [Suspect]
     Dosage: 1 MG (1 MG, 1 IN 1 D), ORAL; 0.5 MG (0.5 MG, 1 IN 1 D), ORAL
     Route: 048
     Dates: start: 20090427, end: 20090526
  4. HALOPERIDOL (HALOPERIDOL) (DROPS (FOR ORAL USE)) [Suspect]
     Dosage: 1 MG (1 MG, 1 IN 1 D), ORAL; 0.5 MG (0.5 MG, 1 IN 1 D), ORAL
     Route: 048
     Dates: start: 20090527, end: 20100811
  5. OMEPRAZOLE [Suspect]
     Dosage: 20-80 MG (1 IN 1 D), ORAL
     Route: 048
     Dates: start: 20090427, end: 20100812
  6. CITALOPRAM HYDROBROMIDE [Suspect]
     Dosage: 20 MG (20 MG, 1 IN 1 D), ORAL
     Route: 048
     Dates: start: 20100708, end: 20100812
  7. RAMIPRIL [Suspect]
     Dosage: 2.5 MG (2.5 MG, 1 IN 1 D), ORAL
     Route: 048
     Dates: start: 20090427, end: 20091211
  8. IBUPROFEN [Suspect]
     Dosage: 1800 MG (600 MG, 3 IN 1 D), ORAL; 1200 MG (600 MG, 2 IN 1 D), ORAL
     Route: 048
     Dates: start: 20091211, end: 20100303
  9. IBUPROFEN [Suspect]
     Dosage: 1800 MG (600 MG, 3 IN 1 D), ORAL; 1200 MG (600 MG, 2 IN 1 D), ORAL
     Route: 048
     Dates: start: 20100304, end: 20100806
  10. RAMIPRIL [Suspect]
     Dosage: 5 MG (5 MG, 1 IN 1 D), ORAL
     Route: 048
     Dates: start: 20091212, end: 20100812

REACTIONS (13)
  - RIB FRACTURE [None]
  - LEIOMYOSARCOMA RECURRENT [None]
  - URINARY TRACT INFECTION [None]
  - ACUTE MYOCARDIAL INFARCTION [None]
  - URAEMIC GASTROPATHY [None]
  - RENAL CYST [None]
  - OVARIAN CYST [None]
  - RENAL FAILURE ACUTE [None]
  - DIALYSIS [None]
  - HYPOCALCAEMIA [None]
  - DEHYDRATION [None]
  - PATHOLOGICAL FRACTURE [None]
  - PANCREATIC ATROPHY [None]
